FAERS Safety Report 7319613-2 (Version None)
Quarter: 2011Q1

REPORT INFORMATION
  Report Type: 
  Country: None (occurrence: None)
  Receive Date: 20110228
  Receipt Date: 20100614
  Transmission Date: 20110831
  Serious: No
  Sender: FDA-Public Use
  Company Number: A0865012A

PATIENT
  Age: 66 Year
  Sex: Female

DRUGS (15)
  1. COUMADIN [Concomitant]
  2. BENEFIBER [Concomitant]
  3. NEXIUM [Concomitant]
  4. LAMICTAL [Suspect]
     Dosage: 175MG THREE TIMES PER DAY
     Route: 048
     Dates: start: 20100501, end: 20100609
  5. CALCIUM [Concomitant]
  6. RANEXA [Concomitant]
  7. ADVAIR DISKUS 100/50 [Concomitant]
  8. RHINOCORT [Concomitant]
  9. FUROSEMIDE [Concomitant]
  10. NITROGLYCERIN [Concomitant]
  11. LIPITOR [Concomitant]
  12. ZETIA [Concomitant]
  13. LAMOTRIGINE [Suspect]
     Dosage: 150MG TWICE PER DAY
     Route: 048
     Dates: start: 20100501
  14. VITAMIN D [Concomitant]
  15. ALBUTEROL [Concomitant]

REACTIONS (7)
  - HEART RATE INCREASED [None]
  - RHINORRHOEA [None]
  - DRUG INEFFECTIVE [None]
  - MYALGIA [None]
  - LYMPHADENOPATHY [None]
  - DIZZINESS [None]
  - COORDINATION ABNORMAL [None]
